FAERS Safety Report 6417452-8 (Version None)
Quarter: 2009Q4

REPORT INFORMATION
  Report Type: 
  Country: None (occurrence: None)
  Receive Date: 20091027
  Receipt Date: 20091027
  Transmission Date: 20100525
  Serious: Yes (Life-Threatening, Hospitalization, Other)
  Sender: FDA-Public Use
  Company Number: None

PATIENT
  Age: 37 Year
  Sex: Female
  Weight: 72.5755 kg

DRUGS (1)
  1. ACCUTANE [Suspect]
     Indication: ACNE CYSTIC
     Dosage: 4 MONTHS PO
     Route: 048
     Dates: start: 19851001, end: 19860129

REACTIONS (2)
  - SUICIDAL IDEATION [None]
  - THERAPEUTIC AGENT TOXICITY [None]
